FAERS Safety Report 5063042-1 (Version None)
Quarter: 2006Q3

REPORT INFORMATION
  Report Type: 
  Country: None (occurrence: None)
  Receive Date: 20060727
  Receipt Date: 20060717
  Transmission Date: 20061208
  Serious: Yes (Other)
  Sender: FDA-Public Use
  Company Number: GBWYE228718JUL06

PATIENT
  Age: 16 Year
  Sex: Male

DRUGS (3)
  1. ENBREL [Suspect]
     Indication: JUVENILE ARTHRITIS
     Dosage: 25MG FREQUENCY UNKNOWN
     Route: 058
     Dates: start: 20030401
  2. CORTICOSTEROIDS [Concomitant]
     Dates: start: 20000801
  3. UNSPECIFIED MEDICATION [Concomitant]
     Dates: start: 20000801

REACTIONS (4)
  - ABDOMINAL PAIN LOWER [None]
  - COLITIS [None]
  - INSOMNIA [None]
  - VOMITING [None]
